FAERS Safety Report 23398786 (Version 1)
Quarter: 2024Q1

REPORT INFORMATION
  Report Type: Spontaneous
  Country: US (occurrence: US)
  Receive Date: 20240112
  Receipt Date: 20240112
  Transmission Date: 20240410
  Serious: No
  Sender: FDA-Public Use
  Company Number: US-PFIZER INC-PV202400004066

PATIENT

DRUGS (1)
  1. LITFULO [Suspect]
     Active Substance: RITLECITINIB TOSYLATE
     Indication: Pemphigus
     Dosage: 200 MG, DAILY

REACTIONS (3)
  - Chest pain [Unknown]
  - Off label use [Unknown]
  - Prescribed overdose [Unknown]
